FAERS Safety Report 20771889 (Version 3)
Quarter: 2023Q4

REPORT INFORMATION
  Report Type: Other
  Country: CA (occurrence: None)
  Receive Date: 20220501
  Receipt Date: 20231201
  Transmission Date: 20240110
  Serious: Yes (Other)
  Sender: FDA-Public Use
  Company Number: CA-ROCHE-3026928

PATIENT
  Sex: Male

DRUGS (3)
  1. ERIVEDGE [Suspect]
     Active Substance: VISMODEGIB
     Indication: Basal cell carcinoma
     Dosage: DRUG DOSE FIRST ADMINISTERED IS 150 MG MILLIGRAM(S)
     Route: 048
     Dates: start: 20210916
  2. ERIVEDGE [Suspect]
     Active Substance: VISMODEGIB
     Dosage: DRUG DOSE FIRST ADMINISTERED IS 150 MG MILLIGRAM(S)
     Route: 048
     Dates: end: 20220206
  3. ERIVEDGE [Suspect]
     Active Substance: VISMODEGIB
     Dosage: DRUG DOSE FIRST ADMINISTERED IS 150 MG MILLIGRAM(S)
     Route: 048
     Dates: start: 20220207, end: 202203

REACTIONS (3)
  - Foot fracture [Unknown]
  - Extremity necrosis [Unknown]
  - Pain in extremity [Unknown]

NARRATIVE: CASE EVENT DATE: 20220101
